FAERS Safety Report 21504564 (Version 2)
Quarter: 2022Q4

REPORT INFORMATION
  Report Type: Spontaneous
  Country: US (occurrence: US)
  Receive Date: 20221025
  Receipt Date: 20221031
  Transmission Date: 20230113
  Serious: No
  Sender: FDA-Public Use
  Company Number: US-SA-SAC20221020000341

PATIENT
  Sex: Female

DRUGS (7)
  1. AUBAGIO [Suspect]
     Active Substance: TERIFLUNOMIDE
     Indication: Multiple sclerosis
     Dosage: 1DF QD
     Route: 048
     Dates: start: 20220420
  2. ALLOPURINOL [Concomitant]
     Active Substance: ALLOPURINOL
     Dosage: UNK
  3. FUROSEMIDE [Concomitant]
     Active Substance: FUROSEMIDE
     Dosage: UNK
  4. MELOXICAM [Concomitant]
     Active Substance: MELOXICAM
     Dosage: UNK
  5. ROSUVASTATIN [Concomitant]
     Active Substance: ROSUVASTATIN
     Dosage: UNK
  6. TRAMADOL HCL [Concomitant]
     Active Substance: TRAMADOL HYDROCHLORIDE
     Dosage: UNK
  7. SPIRONOLACTONE [Concomitant]
     Active Substance: SPIRONOLACTONE
     Dosage: UNK

REACTIONS (16)
  - Lethargy [Unknown]
  - Urinary incontinence [Unknown]
  - Pain [Unknown]
  - Asthenia [Unknown]
  - Tremor [Unknown]
  - Confusional state [Unknown]
  - Appetite disorder [Unknown]
  - Abdominal discomfort [Unknown]
  - Balance disorder [Unknown]
  - Memory impairment [Unknown]
  - Aphasia [Unknown]
  - Disturbance in attention [Unknown]
  - COVID-19 [Unknown]
  - Cataract operation [Unknown]
  - Paraesthesia [Unknown]
  - Alopecia [Unknown]
